FAERS Safety Report 19042530 (Version 2)
Quarter: 2021Q2

REPORT INFORMATION
  Report Type: Report from Study
  Country: US (occurrence: US)
  Receive Date: 20210323
  Receipt Date: 20210413
  Transmission Date: 20210717
  Serious: Yes (Death, Hospitalization, Other)
  Sender: FDA-Public Use
  Company Number: US-GILEAD-2021-0521354

PATIENT
  Age: 74 Year
  Sex: Female
  Weight: 67.5 kg

DRUGS (8)
  1. LOVASTATIN. [Concomitant]
     Active Substance: LOVASTATIN
  2. IRON [Concomitant]
     Active Substance: IRON
  3. HCTZ [Concomitant]
     Active Substance: HYDROCHLOROTHIAZIDE
  4. HYDROCHLOROTHIAZIDE. [Concomitant]
     Active Substance: HYDROCHLOROTHIAZIDE
  5. LISINOPRIL. [Concomitant]
     Active Substance: LISINOPRIL
  6. SOFOSBUVIR W/VELPATASVIR [Suspect]
     Active Substance: SOFOSBUVIR\VELPATASVIR
     Indication: CHRONIC HEPATITIS C
     Dosage: UNK UNK, QD , ^ONCE ORAL QD^
     Route: 048
     Dates: start: 20210107
  7. METFORMIN [Concomitant]
     Active Substance: METFORMIN HYDROCHLORIDE
  8. AMLODIPINE [Concomitant]
     Active Substance: AMLODIPINE BESYLATE

REACTIONS (16)
  - Intestinal ischaemia [Unknown]
  - Diarrhoea [Unknown]
  - Malaise [Unknown]
  - Lactic acidosis [Unknown]
  - General physical health deterioration [Unknown]
  - Shock [Unknown]
  - Anuria [Unknown]
  - Intestinal infarction [Unknown]
  - Hypophosphataemia [Unknown]
  - Gastrointestinal disorder [Unknown]
  - Lethargy [Unknown]
  - Death [Fatal]
  - Acute kidney injury [Unknown]
  - Colon gangrene [Unknown]
  - Sepsis [Unknown]
  - Blood creatinine increased [Unknown]

NARRATIVE: CASE EVENT DATE: 20210303
